FAERS Safety Report 9891818 (Version 4)
Quarter: 2014Q2

REPORT INFORMATION
  Report Type: Spontaneous
  Country: IT (occurrence: IT)
  Receive Date: 20140212
  Receipt Date: 20140409
  Transmission Date: 20141212
  Serious: Yes (Hospitalization, Other)
  Sender: FDA-Public Use
  Company Number: IT-PFIZER INC-2014038178

PATIENT
  Age: 47 Year
  Sex: Male

DRUGS (5)
  1. XANAX [Suspect]
     Dosage: 1.25 MG, SINGLE
     Route: 048
     Dates: start: 20140128, end: 20140128
  2. SEROQUEL [Suspect]
     Dosage: 25 DF, TOTAL
     Route: 048
     Dates: start: 20140128, end: 20140128
  3. FELISON [Concomitant]
     Indication: DEPRESSION
     Dosage: 30 MG, UNK
     Route: 048
  4. CARBOLITHIUM [Concomitant]
     Indication: DEPRESSION
     Dosage: 750 MG, UNK
     Route: 048
  5. DEPAKIN [Concomitant]
     Indication: DEPRESSION
     Dosage: 750 MG, UNK
     Route: 048

REACTIONS (3)
  - Suicide attempt [Recovered/Resolved]
  - Drug abuse [Recovered/Resolved]
  - Sopor [Recovered/Resolved]
